FAERS Safety Report 6040254-1 (Version None)
Quarter: 2009Q1

REPORT INFORMATION
  Report Type: 
  Country: None (occurrence: None)
  Receive Date: 20090116
  Receipt Date: 20080128
  Transmission Date: 20090719
  Serious: No
  Sender: FDA-Public Use
  Company Number: US-BRISTOL-MYERS SQUIBB COMPANY-14056196

PATIENT
  Age: 34 Year
  Sex: Female
  Weight: 77 kg

DRUGS (2)
  1. ABILIFY [Suspect]
     Indication: BIPOLAR DISORDER
     Dosage: DRUG INTERRUPTED: 25JAN08 RESTARTED: 28JAN08 (1/2 TAB - 5 MG)
     Route: 048
     Dates: start: 20080123
  2. ADDERALL 10 [Concomitant]

REACTIONS (5)
  - DIZZINESS [None]
  - FATIGUE [None]
  - HOT FLUSH [None]
  - SOMNOLENCE [None]
  - WEIGHT INCREASED [None]
